FAERS Safety Report 19684415 (Version 1)
Quarter: 2021Q3

REPORT INFORMATION
  Report Type: Report from Study
  Country: IT (occurrence: IT)
  Receive Date: 20210811
  Receipt Date: 20210811
  Transmission Date: 20211014
  Serious: Yes (Other)
  Sender: FDA-Public Use
  Company Number: IT-AUROBINDO-AUR-APL-2021-034332

PATIENT
  Age: 43 Year
  Sex: Male

DRUGS (15)
  1. SULFAMETHOXAZOLE;TRIMETHOPRIM [Suspect]
     Active Substance: SULFAMETHOXAZOLE\TRIMETHOPRIM
     Indication: GRAFT VERSUS HOST DISEASE
     Dosage: UNK
     Route: 065
  2. LEVOFLOXACIN. [Suspect]
     Active Substance: LEVOFLOXACIN
     Indication: GRAFT VERSUS HOST DISEASE
     Dosage: UNK
     Route: 065
  3. MYCOPHENOLATE MOFETIL. [Suspect]
     Active Substance: MYCOPHENOLATE MOFETIL
     Indication: GRAFT VERSUS HOST DISEASE
     Dosage: UNK
     Route: 065
  4. ABACAVIR. [Concomitant]
     Active Substance: ABACAVIR
     Indication: PRODUCT USED FOR UNKNOWN INDICATION
     Dosage: UNK
     Route: 065
  5. IMATINIB. [Concomitant]
     Active Substance: IMATINIB MESYLATE
     Indication: PRODUCT USE IN UNAPPROVED INDICATION
     Dosage: UNK
     Route: 065
  6. TREOSULFAN [Concomitant]
     Active Substance: TREOSULFAN
     Indication: PRODUCT USE IN UNAPPROVED INDICATION
     Dosage: UNK
     Route: 065
  7. RUXOLITINIB [Concomitant]
     Active Substance: RUXOLITINIB
     Indication: PRODUCT USE IN UNAPPROVED INDICATION
     Dosage: UNK
     Route: 065
  8. SIROLIMUS. [Suspect]
     Active Substance: SIROLIMUS
     Indication: GRAFT VERSUS HOST DISEASE
     Dosage: UNK
     Route: 065
  9. RALTEGRAVIR. [Concomitant]
     Active Substance: RALTEGRAVIR
     Indication: PRODUCT USE IN UNAPPROVED INDICATION
     Dosage: UNK
     Route: 065
  10. METHOTREXATE. [Concomitant]
     Active Substance: METHOTREXATE
     Indication: PRODUCT USE IN UNAPPROVED INDICATION
     Dosage: UNK
     Route: 065
  11. PREDNISONE. [Suspect]
     Active Substance: PREDNISONE
     Indication: GRAFT VERSUS HOST DISEASE
     Dosage: 2 MILLIGRAM/KILOGRAM
     Route: 065
  12. ACICLOVIR [Suspect]
     Active Substance: ACYCLOVIR
     Indication: GRAFT VERSUS HOST DISEASE
     Dosage: UNK
     Route: 065
  13. VORICONAZOLE. [Suspect]
     Active Substance: VORICONAZOLE
     Indication: GRAFT VERSUS HOST DISEASE
     Dosage: UNK
     Route: 065
  14. CYCLOPHOSPHAMIDE. [Suspect]
     Active Substance: CYCLOPHOSPHAMIDE
     Indication: GRAFT VERSUS HOST DISEASE
     Dosage: UNK
     Route: 065
  15. FLUDARABINE [Concomitant]
     Active Substance: FLUDARABINE PHOSPHATE
     Indication: PRODUCT USE IN UNAPPROVED INDICATION
     Dosage: UNK
     Route: 065

REACTIONS (5)
  - Cytomegalovirus infection reactivation [Unknown]
  - Herpes virus infection [Unknown]
  - Pneumonia influenzal [Unknown]
  - Pneumonia respiratory syncytial viral [Unknown]
  - Product use in unapproved indication [Unknown]
